FAERS Safety Report 26155857 (Version 1)
Quarter: 2025Q4

REPORT INFORMATION
  Report Type: Spontaneous
  Country: CN (occurrence: CN)
  Receive Date: 20251215
  Receipt Date: 20251215
  Transmission Date: 20260117
  Serious: Yes (Life-Threatening, Hospitalization)
  Sender: MERCK SHARP & DOHME LLC
  Company Number: CN-009507513-2360195

PATIENT
  Age: 34 Year
  Sex: Female
  Weight: 81 kg

DRUGS (4)
  1. KEYTRUDA [Suspect]
     Active Substance: PEMBROLIZUMAB
     Indication: Cervix carcinoma stage IV
     Dosage: TIME INTERVAL: TOTAL
     Route: 041
     Dates: start: 20251121, end: 20251121
  2. PACLITAXEL [Suspect]
     Active Substance: PACLITAXEL
     Indication: Cervix carcinoma stage IV
     Dosage: TIME INTERVAL: TOTAL
     Route: 041
     Dates: start: 20251121, end: 20251121
  3. BEVACIZUMAB [Suspect]
     Active Substance: BEVACIZUMAB
     Indication: Cervix carcinoma stage IV
     Dosage: TIME INTERVAL: TOTAL
     Route: 041
     Dates: start: 20251121, end: 20251121
  4. CISPLATIN [Suspect]
     Active Substance: CISPLATIN
     Indication: Cervix carcinoma stage IV
     Dosage: TIME INTERVAL: TOTAL
     Route: 041
     Dates: start: 20251121, end: 20251121

REACTIONS (3)
  - Myelosuppression [Recovering/Resolving]
  - Pyrexia [Recovering/Resolving]
  - Product use in unapproved indication [Unknown]

NARRATIVE: CASE EVENT DATE: 20251121
